FAERS Safety Report 5067510-8 (Version None)
Quarter: 2006Q3

REPORT INFORMATION
  Report Type: 
  Country: None (occurrence: None)
  Receive Date: 20060727
  Receipt Date: 20060717
  Transmission Date: 20061208
  Serious: Yes (Hospitalization)
  Sender: FDA-Public Use
  Company Number: 2005093359

PATIENT
  Age: 35 Year
  Sex: Female
  Weight: 50 kg

DRUGS (4)
  1. DEPO-PROVERA [Suspect]
     Dosage: SEE IMAGE
     Dates: start: 20020101, end: 20020101
  2. DEPO-PROVERA [Suspect]
     Dosage: SEE IMAGE
     Dates: start: 20040812, end: 20040812
  3. NORLEVO (LEVONORGESTREL) [Concomitant]
  4. LOSEC (OMPERAZOLE) [Concomitant]

REACTIONS (15)
  - ABDOMINAL DISCOMFORT [None]
  - ALPHA 1 FOETOPROTEIN INCREASED [None]
  - AMNIOTIC FLUID VOLUME DECREASED [None]
  - CAESAREAN SECTION [None]
  - DEHYDRATION [None]
  - DRUG EXPOSURE DURING PREGNANCY [None]
  - ECHOGRAPHY ABNORMAL [None]
  - GASTROINTESTINAL INFECTION [None]
  - OLIGOHYDRAMNIOS [None]
  - PREGNANCY WITH INJECTABLE CONTRACEPTIVE [None]
  - PREMATURE BABY [None]
  - REFUSAL OF TREATMENT BY PATIENT [None]
  - TREATMENT NONCOMPLIANCE [None]
  - UNINTENDED PREGNANCY [None]
  - VOMITING [None]
